FAERS Safety Report 4424706-3 (Version None)
Quarter: 2004Q3

REPORT INFORMATION
  Report Type: 
  Country: None (occurrence: None)
  Receive Date: 20040809
  Receipt Date: 20040730
  Transmission Date: 20050211
  Serious: Yes (Life-Threatening)
  Sender: FDA-Public Use
  Company Number: 2004AP03320

PATIENT
  Age: 68 Year
  Sex: Female

DRUGS (10)
  1. MEROPEN [Suspect]
     Indication: PYREXIA
     Dosage: 0.5 G BID IV
     Route: 042
     Dates: start: 20040502, end: 20040506
  2. RIVOTRIL [Concomitant]
  3. TEGRETOL [Concomitant]
  4. HORIZON [Concomitant]
  5. HALCION [Concomitant]
  6. METHYLCOBAL [Concomitant]
  7. GASTER D [Concomitant]
  8. SULPERAZONE [Concomitant]
  9. PANTOSIN [Concomitant]
  10. MAGNESIUM OXIDE [Concomitant]

REACTIONS (13)
  - BLOOD PRESSURE DECREASED [None]
  - CANDIDIASIS [None]
  - CARDIAC FAILURE ACUTE [None]
  - DERMATITIS [None]
  - EYELID OEDEMA [None]
  - FACE OEDEMA [None]
  - FUNGUS SEROLOGY TEST POSITIVE [None]
  - ILEUS [None]
  - PHARYNGOLARYNGEAL PAIN [None]
  - PNEUMONIA [None]
  - RESPIRATORY FAILURE [None]
  - STOMATITIS [None]
  - URINE OUTPUT DECREASED [None]
